FAERS Safety Report 4279825-1 (Version None)
Quarter: 2004Q1

REPORT INFORMATION
  Report Type: 
  Country: None (occurrence: None)
  Receive Date: 20040122
  Receipt Date: 20040113
  Transmission Date: 20041129
  Serious: Yes (Hospitalization)
  Sender: FDA-Public Use
  Company Number: 200410101DE

PATIENT
  Age: 33 Year
  Sex: Female
  Weight: 52 kg

DRUGS (63)
  1. NOVALGIN SOLUTION FOR INJECTION [Suspect]
     Indication: PAIN
     Dosage: PRN IV
     Route: 042
     Dates: start: 20011128, end: 20011202
  2. CLAFORAN SOLUTION FOR INJECTION [Suspect]
     Indication: INFECTION
     Dosage: 2 G TID IV
     Route: 042
     Dates: start: 20011130, end: 20011201
  3. LASIX [Suspect]
     Indication: OEDEMA
     Dosage: 500 MG/DAY IV
     Route: 042
     Dates: start: 20011109, end: 20011126
  4. FERRLECIT SOLUTION FOR INJECTION [Suspect]
     Indication: IRON DEFICIENCY
     Dosage: IV
     Route: 042
     Dates: start: 20011205, end: 20011205
  5. LAMICTAL [Suspect]
     Indication: EPILEPSY
     Dosage: PO
     Route: 048
     Dates: start: 20011112, end: 20011114
  6. LAMICTAL [Suspect]
     Indication: EPILEPSY
     Dosage: PO
     Route: 048
     Dates: start: 20011118, end: 20011124
  7. AUGMENTAN SOLUTION FOR INJECTION [Suspect]
     Indication: INFECTION
     Dosage: 2.2 G TID IV
     Route: 042
     Dates: start: 20011121, end: 20011123
  8. DORMICUM SOLUTION FOR INJECTION [Suspect]
     Indication: PAIN
     Dosage: IV
     Route: 042
     Dates: start: 20011113, end: 20011117
  9. DORMICUM SOLUTION FOR INJECTION [Suspect]
     Indication: PAIN
     Dosage: IV
     Route: 042
     Dates: start: 20011205, end: 20011207
  10. COTRIM FORTE SOLUTION FOR INJECTION [Suspect]
     Indication: INFECTION
     Dosage: 960 MG BID IV
     Route: 042
     Dates: start: 20011116, end: 20011120
  11. CIPROBAY SOLUTION FOR INJECTION [Suspect]
     Indication: INFECTION
     Dosage: 200 MG BID IV
     Route: 042
     Dates: start: 20011121, end: 20011123
  12. TAVOR EXPIDET [Suspect]
     Indication: AGITATION
     Dosage: PO
     Route: 048
     Dates: start: 20011109, end: 20011208
  13. RIVOTRIL SOLUTION FOR INJECTION [Suspect]
     Dosage: 1 MG/DAY IV
     Route: 042
     Dates: start: 20011112, end: 20011205
  14. FRAXIPARIN SOLUTION FOR INJECTION [Suspect]
     Indication: THROMBOSIS PROPHYLAXIS
     Dosage: QD SC
     Route: 058
     Dates: start: 20011117, end: 20011124
  15. FRAXIPARIN SOLUTION FOR INJECTION [Suspect]
     Indication: THROMBOSIS PROPHYLAXIS
     Dosage: QD  SSC
     Route: 058
     Dates: start: 20011205, end: 20011207
  16. DIFLUCAN [Suspect]
     Indication: CANDIDIASIS
     Dosage: 200 MG/DAY IV
     Route: 042
     Dates: start: 20011118, end: 20011120
  17. NOVODIGAL SOLUTION FOR INJECTION [Suspect]
     Indication: CARDIAC FAILURE
     Dosage: 0.2 MG QD IV
     Route: 042
     Dates: start: 20011121, end: 20011202
  18. LIPOFUNDIN SOLUTION FOR INFUSION [Suspect]
     Dosage: 250 MG/DAY IVF
     Route: 042
     Dates: start: 20011121, end: 20011205
  19. RANITIDIN SOLUTION FOR INJECTION [Suspect]
     Dosage: 1000 MG/DAY IV
     Route: 042
     Dates: start: 20011123, end: 20011126
  20. URSODEOXYCHOLSAEURE [Suspect]
     Indication: CHOLELITHIASIS
     Dosage: TID PO
     Route: 048
     Dates: start: 20011123, end: 20011128
  21. HEPA-MERZ GRANULES [Suspect]
     Indication: METABOLIC DISORDER
     Dosage: QID PO
     Route: 048
     Dates: start: 20011124, end: 20011128
  22. AMINOSTERIL SOLUTION FOR INFUSION [Suspect]
     Dosage: 2000 ML/DAY IVF
     Route: 042
     Dates: start: 20011124, end: 20011130
  23. ACTRAPID SOLUTION FOR INFUSION [Suspect]
     Indication: METABOLIC DISORDER
     Dosage: 50 MLDAY IVF
     Route: 042
     Dates: start: 20011124, end: 20011202
  24. LIQUEMIN SOLUTION FOR INJECTION [Suspect]
     Indication: THROMBOSIS PROPHYLAXIS
     Dosage: 20000 IU/DAY IV
     Route: 042
     Dates: start: 20011126, end: 20011203
  25. BIFITERAL SYRUP [Suspect]
     Indication: CONSTIPATION
     Dosage: 60 ML QID PO
     Route: 048
     Dates: start: 20011128, end: 20011205
  26. FOSFOCIN SOLUTION FOR INJECTION [Suspect]
     Indication: INFECTION
     Dosage: 2 G TID IV
     Route: 042
     Dates: start: 20011130, end: 20011205
  27. KETANEST SOLUTION FOR INFUSION [Suspect]
     Indication: GENERAL ANAESTHESIA
     Dosage: IVF
     Route: 042
     Dates: start: 20011205, end: 20011205
  28. CLONIDIN SOLUTION FOR INFUSION [Suspect]
     Indication: HYPERTENSION
     Dosage: IVF
     Route: 042
     Dates: start: 20011205, end: 20011207
  29. THEOPHYLIN SOLUTION FOR INJECTION [Suspect]
     Indication: BRONCHOSPASM
     Dosage: 6 MMG/H IV
     Route: 042
     Dates: start: 20011205, end: 20011207
  30. HEPARIN [Concomitant]
  31. ATOSIL [Concomitant]
  32. BRICANYL [Concomitant]
  33. VANCOMYCIN [Concomitant]
  34. AKINETON [Concomitant]
  35. ZIENAM [Concomitant]
  36. ERGENYL [Concomitant]
  37. IRON [Concomitant]
  38. SAB SIMPLEX [Concomitant]
  39. PANTOZOL [Concomitant]
  40. NUTRIFLEX [Concomitant]
  41. ALBUMIN (HUMAN) [Concomitant]
  42. THIAMINE HCL [Concomitant]
  43. VITAMIN B KOMPLEX [Concomitant]
  44. FERRO-FOLSAN [Concomitant]
  45. NATRIUMCHLORID [Concomitant]
  46. OTRIVEN NT [Concomitant]
  47. NYSTATIN [Concomitant]
  48. XANEF [Concomitant]
  49. NOREPINEPHRINE BITARTRATE [Concomitant]
  50. K CL TAB [Concomitant]
  51. SOLU-DECORTIN H [Concomitant]
  52. GLUCOSE [Concomitant]
  53. KONAKION [Concomitant]
  54. MULTIVITAMIN [Concomitant]
  55. DIPIDOLOR [Concomitant]
  56. CALCIUM [Concomitant]
  57. PASPERTIN [Concomitant]
  58. KETAMIN [Concomitant]
  59. CLONT [Concomitant]
  60. FENTANYL [Concomitant]
  61. DOBUTAMIN [Concomitant]
  62. MULTIVITAMIN [Concomitant]
  63. MAGNESIUM VERLA [Concomitant]

REACTIONS (4)
  - ANGIOPATHY [None]
  - SEPSIS [None]
  - STEVENS-JOHNSON SYNDROME [None]
  - TOXIC EPIDERMAL NECROLYSIS [None]
